FAERS Safety Report 6085205-9 (Version None)
Quarter: 2009Q1

REPORT INFORMATION
  Report Type: 
  Country: None (occurrence: None)
  Receive Date: 20090220
  Receipt Date: 20090213
  Transmission Date: 20090719
  Serious: Yes (Hospitalization)
  Sender: FDA-Public Use
  Company Number: US-BIOGENIDEC-2008BI033986

PATIENT
  Age: 51 Year
  Sex: Female

DRUGS (1)
  1. AVONEX [Suspect]
     Indication: MULTIPLE SCLEROSIS
     Route: 030
     Dates: start: 20071107

REACTIONS (5)
  - FACIAL BONES FRACTURE [None]
  - FEMORAL NECK FRACTURE [None]
  - FEMUR FRACTURE [None]
  - HIP FRACTURE [None]
  - ROAD TRAFFIC ACCIDENT [None]
